FAERS Safety Report 10044538 (Version 1)
Quarter: 2014Q1

REPORT INFORMATION
  Report Type: Report from Study
  Country: CA (occurrence: CA)
  Receive Date: 20140328
  Receipt Date: 20140328
  Transmission Date: 20141002
  Serious: Yes (Other)
  Sender: FDA-Public Use
  Company Number: CA-BRISTOL-MYERS SQUIBB COMPANY-20548368

PATIENT
  Age: 73 Year
  Sex: Male

DRUGS (11)
  1. ORENCIA [Suspect]
     Indication: RHEUMATOID ARTHRITIS
     Dosage: 1DF=750 UNITS NOS
     Dates: start: 20130909
  2. FLECAINIDE [Concomitant]
  3. MORPHINE [Concomitant]
  4. TYLENOL #3 [Concomitant]
  5. OXAZEPAM [Concomitant]
  6. DILTIAZEM HCL [Concomitant]
  7. FOLIC ACID [Concomitant]
  8. PREGABALIN [Concomitant]
  9. WARFARIN [Concomitant]
  10. ROSUVASTATIN [Concomitant]
  11. RAMIPRIL [Concomitant]

REACTIONS (1)
  - Arthropathy [Unknown]
